FAERS Safety Report 6737554-6 (Version None)
Quarter: 2010Q2

REPORT INFORMATION
  Report Type: 
  Country: None (occurrence: None)
  Receive Date: 20100524
  Receipt Date: 20100511
  Transmission Date: 20101027
  Serious: Yes (Other)
  Sender: FDA-Public Use
  Company Number: DK-JNJFOC-20100508006

PATIENT
  Sex: Female

DRUGS (10)
  1. FENTANYL [Suspect]
     Indication: ANAESTHESIA
     Route: 042
  2. FENTANYL [Suspect]
     Dosage: 0.15MG WAS ADMINISTERED TO INDUCE ANESHESIA, AND FURTHER DOSE OF 0.15MG, 5 MINS BEFORE INCISION.
     Route: 042
  3. ACETAMINOPHEN [Suspect]
     Route: 065
  4. ACETAMINOPHEN [Suspect]
     Indication: DRUG USE FOR UNKNOWN INDICATION
     Route: 065
  5. PROPOFOL [Suspect]
     Indication: ANAESTHESIA
     Route: 065
  6. GABAPENTIN [Suspect]
     Indication: DRUG USE FOR UNKNOWN INDICATION
     Route: 065
  7. CELECOXIB [Concomitant]
     Route: 065
  8. DEXAMETHASONE [Concomitant]
     Route: 065
  9. DEXTROMETHORPHAN [Concomitant]
     Route: 065
  10. ONDANSETRON [Concomitant]
     Route: 065

REACTIONS (2)
  - ORTHOSTATIC HYPOTENSION [None]
  - ORTHOSTATIC INTOLERANCE [None]
